FAERS Safety Report 17900207 (Version 2)
Quarter: 2020Q2

REPORT INFORMATION
  Report Type: Spontaneous
  Country: US (occurrence: US)
  Receive Date: 20200616
  Receipt Date: 20200618
  Transmission Date: 20200714
  Serious: Yes (Other)
  Sender: FDA-Public Use
  Company Number: US-PFIZER INC-2020231101

PATIENT
  Age: 34 Year
  Sex: Female
  Weight: 56 kg

DRUGS (17)
  1. ISOFLURANE. [Interacting]
     Active Substance: ISOFLURANE
     Indication: MAINTENANCE OF ANAESTHESIA
     Dosage: UNK (INHALED, LARYNGEAL (0.6-1% EXPIRED CONCENTRATION))
  2. VENLAFAXINE [Concomitant]
     Active Substance: VENLAFAXINE HYDROCHLORIDE
     Indication: PAIN
     Dosage: UNK
  3. LISINOPRIL. [Concomitant]
     Active Substance: LISINOPRIL
     Indication: PROTEINURIA
     Dosage: 5 MG, DAILY
  4. MORPHINE SULFATE. [Interacting]
     Active Substance: MORPHINE SULFATE
     Indication: ANAESTHESIA
     Dosage: 10 MG
     Route: 042
  5. ROCURONIUM BROMIDE. [Interacting]
     Active Substance: ROCURONIUM BROMIDE
     Indication: INDUCTION OF ANAESTHESIA
     Dosage: 50 MG
     Route: 042
  6. NPH INSULIN [Concomitant]
     Active Substance: INSULIN BEEF
     Indication: TYPE 1 DIABETES MELLITUS
     Dosage: 12 IU, 2X/DAY (12 U IN THE MORNING AND EVENING)
  7. SEVOFLURANE. [Interacting]
     Active Substance: SEVOFLURANE
     Indication: ANAESTHESIA
     Dosage: UNK (INHALED, (2% EXPIRED CONCENTRATION) IN 100% OXYGEN)
  8. CLONAZEPAM. [Concomitant]
     Active Substance: CLONAZEPAM
     Indication: PAIN
     Dosage: UNK
  9. MIDODRINE [Suspect]
     Active Substance: MIDODRINE
     Indication: ORTHOSTATIC HYPOTENSION
     Dosage: 10 MG, 3X/DAY
  10. GABAPENTIN. [Concomitant]
     Active Substance: GABAPENTIN
     Indication: PAIN
     Dosage: UNK
  11. MIDODRINE [Interacting]
     Active Substance: MIDODRINE
     Indication: ORTHOSTATIC HYPOTENSION
     Dosage: 5 MG, 2X/DAY (DOSE WAS REDUCED TO 5 MG EACH MORNING AND NOON)
  12. FENTANYL CITRATE. [Interacting]
     Active Substance: FENTANYL CITRATE
     Indication: INDUCTION OF ANAESTHESIA
     Dosage: 150 UG
     Route: 042
  13. MIDAZOLAM. [Interacting]
     Active Substance: MIDAZOLAM
     Indication: ANAESTHESIA
     Dosage: 2 MG
     Route: 042
  14. PROPOFOL. [Interacting]
     Active Substance: PROPOFOL
     Indication: INDUCTION OF ANAESTHESIA
     Dosage: 100 MG
     Route: 042
  15. PROPOFOL. [Interacting]
     Active Substance: PROPOFOL
     Dosage: 200 MG
     Route: 042
  16. SEVOFLURANE. [Interacting]
     Active Substance: SEVOFLURANE
     Dosage: UNK (INCREASED)
  17. OXYCODONE [Concomitant]
     Active Substance: OXYCODONE
     Indication: PAIN
     Dosage: UNK

REACTIONS (1)
  - Supine hypertension [Recovered/Resolved]
